FAERS Safety Report 4339738-3 (Version None)
Quarter: 2004Q1

REPORT INFORMATION
  Report Type: 
  Country: None (occurrence: None)
  Receive Date: 20040329
  Receipt Date: 20040225
  Transmission Date: 20041129
  Serious: No
  Sender: FDA-Public Use
  Company Number: 04P-163-0251288-00

PATIENT
  Age: 59 Year
  Sex: Female
  Weight: 76.6579 kg

DRUGS (9)
  1. HUMIRA [Suspect]
     Indication: RHEUMATOID ARTHRITIS
     Dosage: 40 MG, 1 IN 2 WK, SUBCUTANEOUS
     Route: 058
     Dates: start: 20040126
  2. ALENDRONATE SODIUM [Concomitant]
  3. CELECOXIB [Concomitant]
  4. PREDNISONE [Concomitant]
  5. AMITRIPTYLINE HCL [Concomitant]
  6. VICODIN [Concomitant]
  7. NIZATIDINE [Concomitant]
  8. ROSIGLITAZONE MALEATE [Concomitant]
  9. GLUCOPHAGE [Concomitant]

REACTIONS (4)
  - BLOOD PRESSURE INCREASED [None]
  - DYSPHASIA [None]
  - HYPOAESTHESIA [None]
  - SWOLLEN TONGUE [None]
